FAERS Safety Report 7013042-7 (Version None)
Quarter: 2010Q3

REPORT INFORMATION
  Report Type: 
  Country: None (occurrence: None)
  Receive Date: 20100924
  Receipt Date: 20100914
  Transmission Date: 20110219
  Serious: Yes (Life-Threatening, Hospitalization, Other)
  Sender: FDA-Public Use
  Company Number: CL-PFIZER INC-2010116004

PATIENT
  Age: 60 Year
  Sex: Male

DRUGS (1)
  1. CELEBRA [Suspect]
     Dosage: 200 MG, UNK
     Route: 048
     Dates: start: 20020623, end: 20020625

REACTIONS (3)
  - HYPERTENSIVE CRISIS [None]
  - NEPHRITIS [None]
  - POLYURIA [None]
